FAERS Safety Report 4356944-2 (Version None)
Quarter: 2004Q2

REPORT INFORMATION
  Report Type: 
  Country: None (occurrence: None)
  Receive Date: 20040507
  Receipt Date: 20040419
  Transmission Date: 20050107
  Serious: Yes (Other)
  Sender: FDA-Public Use
  Company Number: USA040465364

PATIENT
  Age: 45 Year
  Sex: Female
  Weight: 89 kg

DRUGS (1)
  1. STRATTERA [Suspect]
     Dosage: 60 MG DAY
     Dates: start: 20040101

REACTIONS (4)
  - CONVULSION [None]
  - FEELING ABNORMAL [None]
  - INSOMNIA [None]
  - NERVOUS SYSTEM DISORDER [None]
